FAERS Safety Report 20291707 (Version 1)
Quarter: 2022Q1

REPORT INFORMATION
  Report Type: Spontaneous
  Country: US (occurrence: US)
  Receive Date: 20220104
  Receipt Date: 20220104
  Transmission Date: 20220423
  Serious: No
  Sender: FDA-Public Use
  Company Number: US-ABBVIE-21K-163-4169098-00

PATIENT
  Sex: Male
  Weight: 100 kg

DRUGS (3)
  1. LUPRON DEPOT [Suspect]
     Active Substance: LEUPROLIDE ACETATE
     Indication: Breast cancer
     Route: 030
     Dates: start: 201410
  2. AROMASIN [Concomitant]
     Active Substance: EXEMESTANE
     Indication: Breast cancer
  3. PROTONIX [Concomitant]
     Active Substance: PANTOPRAZOLE SODIUM
     Indication: Gastrooesophageal reflux disease

REACTIONS (1)
  - Off label use [Not Recovered/Not Resolved]
